FAERS Safety Report 23201029 (Version 1)
Quarter: 2023Q4

REPORT INFORMATION
  Report Type: Spontaneous
  Country: US (occurrence: US)
  Receive Date: 20231118
  Receipt Date: 20231118
  Transmission Date: 20240110
  Serious: No
  Sender: FDA-Public Use
  Company Number: US-ABBVIE-5495112

PATIENT
  Sex: Female
  Weight: 74.842 kg

DRUGS (1)
  1. KADIAN [Suspect]
     Active Substance: MORPHINE SULFATE
     Indication: Product used for unknown indication
     Dosage: FORM STRENGTH : 10 MG, EXTENDED-RELEASE CAPSULES
     Route: 048

REACTIONS (1)
  - Pruritus [Unknown]
